FAERS Safety Report 9774281 (Version 1)
Quarter: 2013Q4

REPORT INFORMATION
  Report Type: Spontaneous
  Country: GB (occurrence: GB)
  Receive Date: 20131220
  Receipt Date: 20131220
  Transmission Date: 20140711
  Serious: Yes (Hospitalization)
  Sender: FDA-Public Use
  Company Number: GB-MYLANLABS-2013S1027742

PATIENT
  Age: 86 Year
  Sex: Female
  Weight: 61 kg

DRUGS (5)
  1. CO-CODAMOL [Suspect]
     Indication: JOINT INJURY
     Dosage: DF = 500/30MG PARACETAMOL/CODEINE PHOSPHATE
     Route: 065
  2. RAMIPRIL [Suspect]
     Route: 065
  3. BENDROFLUMETHIAZIDE [Suspect]
     Route: 065
  4. SIMVASTATIN [Concomitant]
     Dosage: 40MG NOCTE
     Route: 065
  5. ASPIRIN [Concomitant]
     Route: 065

REACTIONS (8)
  - Constipation [Recovered/Resolved]
  - Hypophagia [Recovered/Resolved]
  - Renal failure acute [Recovered/Resolved]
  - Fall [Recovered/Resolved]
  - Somnolence [Recovered/Resolved]
  - Toxicity to various agents [Recovered/Resolved]
  - Urinary incontinence [Recovered/Resolved]
  - Condition aggravated [Recovered/Resolved]
